FAERS Safety Report 6363809-3 (Version None)
Quarter: 2009Q3

REPORT INFORMATION
  Report Type: 
  Country: None (occurrence: None)
  Receive Date: 20090919
  Receipt Date: 20090713
  Transmission Date: 20100115
  Serious: No
  Sender: FDA-Public Use
  Company Number: US-ABBOTT-09P-163-0584759-00

PATIENT
  Sex: Female
  Weight: 97.156 kg

DRUGS (1)
  1. HUMIRA [Suspect]
     Indication: DRUG USE FOR UNKNOWN INDICATION
     Dates: start: 20090625

REACTIONS (3)
  - BRONCHITIS [None]
  - CONTUSION [None]
  - INFLUENZA [None]
